FAERS Safety Report 5316254-3 (Version None)
Quarter: 2007Q2

REPORT INFORMATION
  Report Type: 
  Country: None (occurrence: None)
  Receive Date: 20070503
  Receipt Date: 20070418
  Transmission Date: 20071010
  Serious: Yes (Other)
  Sender: FDA-Public Use
  Company Number: BR-GENENTECH-240292

PATIENT
  Age: 42 Year
  Sex: Female

DRUGS (5)
  1. HERCEPTIN [Suspect]
     Indication: BREAST CANCER
     Dosage: 21 MG, Q4W
     Route: 042
     Dates: start: 20070308
  2. PREDNISONE [Concomitant]
     Indication: DRUG USE FOR UNKNOWN INDICATION
     Dosage: 10 MG, QD
     Dates: end: 20070315
  3. PREDNISONE [Concomitant]
     Dosage: 20 MG, UNK
  4. PREDNISONE [Concomitant]
     Dosage: 40 MG, UNK
  5. RADIOTHERAPY [Concomitant]
     Indication: DRUG USE FOR UNKNOWN INDICATION
     Dates: start: 20070308

REACTIONS (4)
  - MALAISE [None]
  - MYOSITIS [None]
  - POLYMYOSITIS [None]
  - PYREXIA [None]
